FAERS Safety Report 6176856-1 (Version None)
Quarter: 2009Q2

REPORT INFORMATION
  Report Type: 
  Country: None (occurrence: None)
  Receive Date: 20090501
  Receipt Date: 20090424
  Transmission Date: 20091009
  Serious: Yes (Other)
  Sender: FDA-Public Use
  Company Number: PHEH2008US07465

PATIENT
  Sex: Male

DRUGS (8)
  1. ZOMETA [Suspect]
  2. IBUPROFEN [Concomitant]
     Dosage: 800 MG, TID
  3. HYZAAR [Concomitant]
     Dosage: 50/12.5MG 1/2 TABLET DAILY
  4. NIACIN [Concomitant]
     Dosage: 1000 MG EVERY HS
  5. EFFEXOR [Concomitant]
     Dosage: 225MG DAILY
  6. PROSCAR [Concomitant]
     Dosage: 10MG
  7. ASPIRIN [Concomitant]
     Dosage: 5 GR QD
  8. AMBIEN [Concomitant]
     Dosage: OCCASIONALLY

REACTIONS (8)
  - ANHEDONIA [None]
  - ANXIETY [None]
  - CHEST PAIN [None]
  - INJURY [None]
  - NECK PAIN [None]
  - OSTEONECROSIS [None]
  - PAIN [None]
  - SPINAL OSTEOARTHRITIS [None]
